FAERS Safety Report 19676167 (Version 3)
Quarter: 2021Q4

REPORT INFORMATION
  Report Type: Spontaneous
  Country: US (occurrence: US)
  Receive Date: 20210809
  Receipt Date: 20211112
  Transmission Date: 20220303
  Serious: No
  Sender: FDA-Public Use
  Company Number: NVSC2021US174520

PATIENT
  Sex: Female

DRUGS (1)
  1. COSENTYX [Suspect]
     Active Substance: SECUKINUMAB
     Indication: Psoriasis
     Dosage: 300 MG, QW
     Route: 058

REACTIONS (9)
  - Arthralgia [Unknown]
  - Peripheral swelling [Unknown]
  - Skin haemorrhage [Unknown]
  - Gait disturbance [Unknown]
  - Condition aggravated [Unknown]
  - Psoriasis [Unknown]
  - Rash [Unknown]
  - Pain [Unknown]
  - Inappropriate schedule of product administration [Unknown]
